FAERS Safety Report 8782159 (Version 1)
Quarter: 2012Q4

REPORT INFORMATION
  Report Type: 
  Country: US (occurrence: US)
  Receive Date: 20120913
  Receipt Date: 20120913
  Transmission Date: 20130627
  Serious: Yes (Hospitalization, Other)
  Sender: FDA-Public Use
  Company Number: US-GENZYME-RENA-1001626

PATIENT
  Age: 55 Year
  Sex: Male

DRUGS (1)
  1. RENVELA [Suspect]
     Indication: HYPERPHOSPHATAEMIA
     Dosage: 3.2 g, qd
     Route: 065

REACTIONS (2)
  - Hospitalisation [Unknown]
  - Gastrostomy tube insertion [Unknown]
